FAERS Safety Report 5093944-1 (Version None)
Quarter: 2006Q3

REPORT INFORMATION
  Report Type: 
  Country: None (occurrence: None)
  Receive Date: 20060831
  Receipt Date: 20060630
  Transmission Date: 20061208
  Serious: Yes (Hospitalization)
  Sender: FDA-Public Use
  Company Number: 2006AP03538

PATIENT
  Age: 58 Year
  Sex: Female

DRUGS (5)
  1. ANAPEINE INJECTION [Suspect]
     Indication: EPIDURAL ANAESTHESIA
     Dosage: EPIDURAL ANAESTHESIA
     Route: 008
  2. ANAPEINE INJECTION [Suspect]
     Dosage: EPIDURAL ANAESTHESIA
     Route: 008
  3. ANAPEINE INJECTION [Suspect]
     Dosage: EPIDRUAL ANALGESIA
     Route: 008
  4. ANAPEINE INJECTION [Suspect]
     Dosage: EPIDRUAL ANALGESIA
     Route: 008
  5. MORPHINE [Concomitant]
     Indication: EPIDURAL ANAESTHESIA
     Route: 008

REACTIONS (1)
  - SKIN DISORDER [None]
